FAERS Safety Report 10037760 (Version 1)
Quarter: 2014Q1

REPORT INFORMATION
  Report Type: Spontaneous
  Country: US (occurrence: None)
  Receive Date: 20140324
  Receipt Date: 20140324
  Transmission Date: 20141002
  Serious: Yes (Other)
  Sender: FDA-Public Use
  Company Number: COL_15471_2014

PATIENT
  Age: 4 Year
  Sex: Female

DRUGS (2)
  1. HYDROGEN PEROXIDE [Suspect]
     Indication: DENTAL CARE
     Dosage: SMALL AMOUNT APPLIED TO 4X4/ONCE/ TOPICAL)?
     Route: 061
     Dates: start: 20140310, end: 20140310
  2. VANISH [Concomitant]

REACTIONS (3)
  - Hypersensitivity [None]
  - Erythema [None]
  - Respiratory arrest [None]
